FAERS Safety Report 10176993 (Version 1)
Quarter: 2014Q2

REPORT INFORMATION
  Report Type: Spontaneous
  Country: US (occurrence: None)
  Receive Date: 20140515
  Receipt Date: 20140515
  Transmission Date: 20141212
  Serious: No
  Sender: FDA-Public Use
  Company Number: None

PATIENT
  Age: 53 Year
  Sex: Female
  Weight: 54.6 kg

DRUGS (1)
  1. PACLITAXEL (TAXOL) [Suspect]
     Dates: end: 20140505

REACTIONS (3)
  - Small intestinal obstruction [None]
  - White blood cell count decreased [None]
  - Neutrophil count decreased [None]
